FAERS Safety Report 7125548-0 (Version None)
Quarter: 2010Q4

REPORT INFORMATION
  Report Type: 
  Country: None (occurrence: None)
  Receive Date: 20101115
  Receipt Date: 20101029
  Transmission Date: 20110411
  Serious: Yes (Hospitalization)
  Sender: FDA-Public Use
  Company Number: 2010110014

PATIENT
  Age: 55 Year
  Sex: Male

DRUGS (1)
  1. TORSEMIDE [Suspect]
     Dosage: 10 MG (10 MG,1 IN D), ORAL
     Route: 048
     Dates: start: 20100904, end: 20100918

REACTIONS (1)
  - PANCREATITIS ACUTE [None]
